FAERS Safety Report 7294810-3 (Version None)
Quarter: 2011Q1

REPORT INFORMATION
  Report Type: 
  Country: None (occurrence: None)
  Receive Date: 20110203
  Receipt Date: 20110124
  Transmission Date: 20110831
  Serious: Yes (Hospitalization)
  Sender: FDA-Public Use
  Company Number: WAES 1101USA02729

PATIENT
  Age: 46 Year
  Sex: Male

DRUGS (2)
  1. TAB ISENTRESS UNK [Suspect]
     Indication: HIV INFECTION
     Dosage: 400 MG/BID/PO
     Route: 048
     Dates: start: 20101008
  2. TAB DARUNAVIR [Suspect]
     Indication: HIV INFECTION
     Dosage: 400 MG/BID/PO
     Route: 048
     Dates: start: 20101008

REACTIONS (1)
  - FEBRILE NEUTROPENIA [None]
